FAERS Safety Report 4584824-6 (Version None)
Quarter: 2005Q1

REPORT INFORMATION
  Report Type: 
  Country: None (occurrence: None)
  Receive Date: 20050214
  Receipt Date: 20050208
  Transmission Date: 20050727
  Serious: Yes (Life-Threatening)
  Sender: FDA-Public Use
  Company Number: 1420

PATIENT
  Age: 35 Year
  Sex: Female
  Weight: 38.1022 kg

DRUGS (3)
  1. AMNESTEEM [Suspect]
     Indication: ACNE
     Dosage: 40MG, QD, PO
     Route: 048
     Dates: start: 20040909, end: 20050205
  2. ZOCOR [Concomitant]
  3. VITAMINS [Concomitant]

REACTIONS (1)
  - BREAST CANCER FEMALE [None]
